FAERS Safety Report 12596071 (Version 1)
Quarter: 2016Q3

REPORT INFORMATION
  Report Type: Spontaneous
  Country: US (occurrence: US)
  Receive Date: 20160727
  Receipt Date: 20160727
  Transmission Date: 20161109
  Serious: No
  Sender: FDA-Public Use
  Company Number: US-TEVA-655252USA

PATIENT
  Sex: Female
  Weight: 72.64 kg

DRUGS (9)
  1. LISINOPRIL. [Suspect]
     Active Substance: LISINOPRIL
     Dosage: IN THE MORNING
  2. LISINOPRIL. [Suspect]
     Active Substance: LISINOPRIL
     Dosage: IN THE AFTERNOON
  3. ASPIRIN. [Concomitant]
     Active Substance: ASPIRIN
     Dosage: AFTER SUPPER
  4. FISH OIL [Concomitant]
     Active Substance: FISH OIL
     Dosage: AT NIGHT
  5. WARFARIN [Suspect]
     Active Substance: WARFARIN
     Dosage: THURSDAY
  6. AMLODIPINE [Concomitant]
     Active Substance: AMLODIPINE BESYLATE
     Dosage: 5 MILLIGRAM DAILY;
  7. CRANBERRY. [Concomitant]
     Active Substance: CRANBERRY
  8. WARFARIN [Suspect]
     Active Substance: WARFARIN
     Dosage: FRIDAY THROUGH WEDNESDAY
  9. TRIMETHOPRIM. [Suspect]
     Active Substance: TRIMETHOPRIM
     Indication: URINARY TRACT INFECTION
     Dosage: 100 MILLIGRAM DAILY;

REACTIONS (4)
  - Ear congestion [Recovering/Resolving]
  - Ear discomfort [Recovering/Resolving]
  - Sinus disorder [Recovering/Resolving]
  - Dysphonia [Recovering/Resolving]
